FAERS Safety Report 25400738 (Version 1)
Quarter: 2025Q2

REPORT INFORMATION
  Report Type: Spontaneous
  Country: FR (occurrence: FR)
  Receive Date: 20250605
  Receipt Date: 20250605
  Transmission Date: 20250716
  Serious: Yes (Hospitalization, Other)
  Sender: MERCK SHARP & DOHME LLC
  Company Number: None

PATIENT
  Age: 68 Year
  Sex: Female
  Weight: 50.4 kg

DRUGS (16)
  1. DAPTOMYCIN [Suspect]
     Active Substance: DAPTOMYCIN
     Indication: Infection
     Dosage: DOSE DESCRIPTION : 500 MILLIGRAM, QD?DAILY DOSE : 500 MILLIGRAM?REGIMEN DOSE : 14000  MILLIGRAM
     Route: 042
     Dates: start: 20230328, end: 20230425
  2. HYDROCHLOROTHIAZIDE\IRBESARTAN [Concomitant]
     Active Substance: HYDROCHLOROTHIAZIDE\IRBESARTAN
  3. LANSOPRAZOLE [Suspect]
     Active Substance: LANSOPRAZOLE
     Indication: Infection
     Dosage: DOSE DESCRIPTION : 15 MILLIGRAM, QD?DAILY DOSE : 15 MILLIGRAM?REGIMEN DOSE : 780  MILLIGRAM
     Route: 048
     Dates: start: 20230302, end: 20230423
  4. AMOXICILLIN [Suspect]
     Active Substance: AMOXICILLIN
     Indication: Infection
     Dosage: DOSE DESCRIPTION : 6 GRAM, QD?DAILY DOSE : 6 GRAM
     Route: 042
     Dates: start: 20230411
  5. AMOXICILLIN [Suspect]
     Active Substance: AMOXICILLIN
     Indication: Infection
     Dates: start: 202304
  6. POTASSIUM CHLORIDE [Concomitant]
     Active Substance: POTASSIUM CHLORIDE
     Dosage: DOSE DESCRIPTION : 3 DOSAGE FORM, QD?DAILY DOSE : 3 DOSAGE FORM
     Route: 048
  7. ACETAMINOPHEN [Concomitant]
     Active Substance: ACETAMINOPHEN
     Indication: Pain
     Dosage: DOSE DESCRIPTION : 3 GRAM, QD?DAILY DOSE : 3 GRAM
     Route: 048
  8. ATORVASTATIN [Concomitant]
     Active Substance: ATORVASTATIN
     Indication: Prophylaxis
     Route: 048
  9. INNOVAIR [Concomitant]
     Active Substance: BECLOMETHASONE DIPROPIONATE\FORMOTEROL
     Dosage: DOSE DESCRIPTION : 2 DOSAGE FORM, QD; FORMULATION: SOLUTION FOR INHALATION IN A PRESSURIZED VIAL?...
  10. KARDEGIC [Concomitant]
     Active Substance: ASPIRIN DL-LYSINE
     Indication: Cardiovascular event prophylaxis
     Dosage: FORMULATION: POWDER FOR ORAL SOLUTION IN SACHET?CONCENTRATION: 75 MILLIGRAM
     Route: 048
     Dates: start: 20230322
  11. LOVENOX [Concomitant]
     Active Substance: ENOXAPARIN SODIUM
     Dosage: DOSE DESCRIPTION : 3000 INTERNATIONAL UNIT, QD?DAILY DOSE : 3000 INTERNATIONAL UNIT
     Route: 058
     Dates: start: 202303
  12. ALFUZOSIN [Concomitant]
     Active Substance: ALFUZOSIN
     Dosage: DOSE DESCRIPTION : 1 DOSAGE FORM, QD?DAILY DOSE : 1 DOSAGE FORM?CONCENTRATION: 10 MILLIGRAM
     Route: 048
  13. AUGMENTIN [Concomitant]
     Active Substance: AMOXICILLIN\CLAVULANATE POTASSIUM
     Indication: Infection
     Dosage: DOSE DESCRIPTION : STRENGTH: 2G/200MG; 6 GRAM, QD; FORMULATION?DAILY DOSE : 6 GRAM
     Route: 042
     Dates: start: 20230411
  14. DOXYCYCLINE [Concomitant]
     Active Substance: DOXYCYCLINE
     Dosage: FOR 6 WEEKS, TO BE DECREASED TO 100 MG/D THEREAFTER.
     Dates: start: 202304
  15. METRONIDAZOLE [Concomitant]
     Active Substance: METRONIDAZOLE
     Dates: start: 20230330
  16. MEROPENEM [Concomitant]
     Active Substance: MEROPENEM
     Dates: start: 20230405

REACTIONS (4)
  - Agranulocytosis [Recovered/Resolved]
  - Overdose [Unknown]
  - White blood cell count decreased [Unknown]
  - Erythroblast count increased [Unknown]

NARRATIVE: CASE EVENT DATE: 20230412
